FAERS Safety Report 23793918 (Version 6)
Quarter: 2024Q3

REPORT INFORMATION
  Report Type: Spontaneous
  Country: US (occurrence: US)
  Receive Date: 20240429
  Receipt Date: 20240826
  Transmission Date: 20241017
  Serious: Yes (Hospitalization, Other)
  Sender: IPSEN
  Company Number: US-IPSEN Group, Research and Development-2024-07190

PATIENT
  Sex: Male
  Weight: 91 kg

DRUGS (9)
  1. SOMATULINE DEPOT [Suspect]
     Active Substance: LANREOTIDE ACETATE
     Indication: Acromegaly
     Dosage: 90MG UNDER SKIN EVERY MONTH
     Route: 058
     Dates: start: 2008
  2. FARXIGA [Concomitant]
     Active Substance: DAPAGLIFLOZIN PROPANEDIOL
  3. METOPROLOL SUCCINATE [Concomitant]
     Active Substance: METOPROLOL SUCCINATE
  4. SPIRONOLACTONE [Concomitant]
     Active Substance: SPIRONOLACTONE
  5. VITAMIN D2 [Concomitant]
     Active Substance: ERGOCALCIFEROL
  6. VITAMIN B12 [Concomitant]
     Active Substance: CYANOCOBALAMIN
  7. TAMSULOSIN [Concomitant]
     Active Substance: TAMSULOSIN
  8. EZETIMIBE [Concomitant]
     Active Substance: EZETIMIBE
  9. SOMAVERT [Concomitant]
     Active Substance: PEGVISOMANT

REACTIONS (3)
  - Atrial fibrillation [Recovering/Resolving]
  - Atrial thrombosis [Recovering/Resolving]
  - Onychoclasis [Unknown]
